FAERS Safety Report 9444535 (Version 2)
Quarter: 2013Q3

REPORT INFORMATION
  Report Type: Spontaneous
  Country: US (occurrence: US)
  Receive Date: 20130807
  Receipt Date: 20130917
  Transmission Date: 20140515
  Serious: Yes (Other)
  Sender: FDA-Public Use
  Company Number: US-PFIZER INC-2013229118

PATIENT
  Age: 64 Year
  Sex: Female
  Weight: 113 kg

DRUGS (2)
  1. LYRICA [Suspect]
     Indication: FIBROMYALGIA
     Dosage: 100 MG, 2X/DAY
     Dates: start: 2007
  2. NUVIGIL [Concomitant]
     Indication: CHRONIC FATIGUE SYNDROME
     Dosage: UNK, DAILY

REACTIONS (1)
  - Depression [Recovered/Resolved]
